FAERS Safety Report 10164133 (Version 2)
Quarter: 2014Q2

REPORT INFORMATION
  Report Type: Spontaneous
  Country: US (occurrence: US)
  Receive Date: 20140510
  Receipt Date: 20140510
  Transmission Date: 20141212
  Serious: No
  Sender: FDA-Public Use
  Company Number: US-BRISTOL-MYERS SQUIBB COMPANY-19481456

PATIENT
  Age: 21 Year
  Sex: Female
  Weight: 90.7 kg

DRUGS (3)
  1. BYDUREON [Suspect]
     Indication: DIABETES MELLITUS
     Dosage: LAST DOSE:02-DEC-2013
     Route: 058
     Dates: start: 20130923
  2. GLUMETZA [Concomitant]
  3. KOMBIGLYZE XR [Concomitant]

REACTIONS (6)
  - Injection site swelling [Not Recovered/Not Resolved]
  - Injection site pruritus [Recovered/Resolved]
  - Injection site erythema [Recovered/Resolved]
  - Injection site pain [Recovered/Resolved]
  - Injection site extravasation [Unknown]
  - Drug dose omission [Unknown]
